FAERS Safety Report 19884326 (Version 1)
Quarter: 2021Q3

REPORT INFORMATION
  Report Type: Spontaneous
  Country: US (occurrence: US)
  Receive Date: 20210924
  Receipt Date: 20210924
  Transmission Date: 20211014
  Serious: No
  Sender: FDA-Public Use
  Company Number: None

PATIENT

DRUGS (1)
  1. FENTANYL (FENTANYL) [Suspect]
     Active Substance: FENTANYL
     Route: 061

REACTIONS (2)
  - Intercepted product administration error [None]
  - Product label on wrong product [None]
